FAERS Safety Report 4899087-1 (Version None)
Quarter: 2006Q1

REPORT INFORMATION
  Report Type: 
  Country: None (occurrence: None)
  Receive Date: 20060202
  Receipt Date: 20050928
  Transmission Date: 20060701
  Serious: Yes (Other)
  Sender: FDA-Public Use
  Company Number: 200516961US

PATIENT
  Sex: Female
  Weight: 69.1 kg

DRUGS (13)
  1. LANTUS [Suspect]
     Indication: DIABETES MELLITUS
     Dosage: DOSE UNIT: UNITS
     Route: 051
     Dates: start: 20000101, end: 20050926
  2. LANTUS [Suspect]
     Indication: INJURY
     Dosage: DOSE UNIT: UNITS
     Route: 051
     Dates: start: 20000101, end: 20050926
  3. ZINC [Concomitant]
     Dosage: DOSE: UNKNOWN
     Route: 048
  4. HUMALOG [Concomitant]
     Dosage: DOSE: 10 UNITS PRN, 40-60 PER DAY
     Route: 051
  5. PREDNISONE [Concomitant]
     Indication: HYPOTHALAMO-PITUITARY DISORDERS
     Route: 048
     Dates: start: 19670101
  6. PREDNISONE [Concomitant]
     Dosage: DOSE: DOSE INCREASED ABOVE 10 MG PRN PAIN
  7. NORVASC [Concomitant]
     Route: 048
  8. ALTACE [Concomitant]
     Route: 048
  9. POTASSIUM CHLORIDE [Concomitant]
     Route: 048
  10. PEPCID [Concomitant]
     Dosage: DOSE: UNKNOWN
     Route: 048
  11. ZOCOR [Concomitant]
     Dosage: DOSE: UNKNOWN
     Route: 048
  12. ACTONEL [Concomitant]
     Dosage: DOSE: UNKNOWN
     Route: 048
  13. HORMONES AND RELATED AGENTS [Concomitant]
     Dosage: DOSE: UNKNOWN
     Route: 061

REACTIONS (9)
  - BALANCE DISORDER [None]
  - BLOOD GLUCOSE INCREASED [None]
  - DYSPNOEA [None]
  - HYPERGLYCAEMIA [None]
  - HYPERTENSION [None]
  - RENAL CELL CARCINOMA STAGE UNSPECIFIED [None]
  - RENAL NEOPLASM [None]
  - SOMNOLENCE [None]
  - WEIGHT INCREASED [None]
